FAERS Safety Report 14195162 (Version 2)
Quarter: 2017Q4

REPORT INFORMATION
  Report Type: Spontaneous
  Country: BR (occurrence: BR)
  Receive Date: 20171116
  Receipt Date: 20171211
  Transmission Date: 20180321
  Serious: Yes (Hospitalization, Other)
  Sender: FDA-Public Use
  Company Number: BR-PFIZER INC-2017487928

PATIENT
  Age: 71 Year
  Sex: Female

DRUGS (2)
  1. RIVOTRIL [Concomitant]
     Active Substance: CLONAZEPAM
     Indication: MASTECTOMY
     Dosage: UNK
     Dates: start: 2009
  2. XALATAN [Suspect]
     Active Substance: LATANOPROST
     Indication: GLAUCOMA
     Dosage: ONCE DAILY

REACTIONS (4)
  - Asthma [Recovered/Resolved]
  - Malaise [Unknown]
  - Breast cancer metastatic [Not Recovered/Not Resolved]
  - Hypertension [Recovered/Resolved]

NARRATIVE: CASE EVENT DATE: 2009
